FAERS Safety Report 7824566-4 (Version None)
Quarter: 2011Q4

REPORT INFORMATION
  Report Type: 
  Country: None (occurrence: None)
  Receive Date: 20111019
  Receipt Date: 20111006
  Transmission Date: 20120403
  Serious: Yes (Death)
  Sender: FDA-Public Use
  Company Number: US-ELI_LILLY_AND_COMPANY-US201110001803

PATIENT
  Age: 57 Year
  Sex: Male

DRUGS (2)
  1. PAXIL [Concomitant]
  2. ZYPREXA [Suspect]
     Indication: SCHIZOAFFECTIVE DISORDER
     Dosage: 30 MG, UNK

REACTIONS (2)
  - DEATH [None]
  - OVERDOSE [None]
